FAERS Safety Report 11805699 (Version 1)
Quarter: 2015Q4

REPORT INFORMATION
  Report Type: Spontaneous
  Country: US (occurrence: US)
  Receive Date: 20151207
  Receipt Date: 20151207
  Transmission Date: 20160305
  Serious: Yes (Death)
  Sender: FDA-Public Use
  Company Number: US-009507513-1512USA002989

PATIENT
  Sex: Male

DRUGS (1)
  1. EMEND (FOSAPREPITANT DIMEGLUMINE) [Suspect]
     Active Substance: FOSAPREPITANT DIMEGLUMINE

REACTIONS (1)
  - Death [Fatal]

NARRATIVE: CASE EVENT DATE: 20151202
